FAERS Safety Report 21916188 (Version 1)
Quarter: 2023Q1

REPORT INFORMATION
  Report Type: Spontaneous
  Country: US (occurrence: None)
  Receive Date: 20230125
  Receipt Date: 20230125
  Transmission Date: 20230417
  Serious: Yes (Hospitalization)
  Sender: FDA-Public Use
  Company Number: None

PATIENT
  Age: 59 Year
  Sex: Male

DRUGS (2)
  1. LENALIDOMIDE [Suspect]
     Active Substance: LENALIDOMIDE
     Indication: Plasma cell myeloma
     Dosage: OTHER FREQUENCY : 21 D ON 7 D OFF;?
     Route: 048
     Dates: start: 20221228
  2. REVLIMID [Concomitant]
     Active Substance: LENALIDOMIDE

REACTIONS (1)
  - Blood urine present [None]

NARRATIVE: CASE EVENT DATE: 20230115
